FAERS Safety Report 7099442-8 (Version None)
Quarter: 2010Q4

REPORT INFORMATION
  Report Type: 
  Country: None (occurrence: None)
  Receive Date: 20101112
  Receipt Date: 20081006
  Transmission Date: 20110411
  Serious: No
  Sender: FDA-Public Use
  Company Number: US-KINGPHARMUSA00001-K200801169

PATIENT
  Age: 65 Year
  Sex: Male

DRUGS (1)
  1. LEVOXYL [Suspect]
     Indication: HYPOTHYROIDISM
     Dosage: 200 MCG, UNK
     Route: 048
     Dates: start: 20080701

REACTIONS (1)
  - ORAL DISCOMFORT [None]
